FAERS Safety Report 14163794 (Version 6)
Quarter: 2018Q2

REPORT INFORMATION
  Report Type: Spontaneous
  Country: PL (occurrence: PL)
  Receive Date: 20171106
  Receipt Date: 20180604
  Transmission Date: 20180711
  Serious: Yes (Hospitalization, Other)
  Sender: FDA-Public Use
  Company Number: PHHY2017PL161097

PATIENT
  Age: 32 Year
  Sex: Male

DRUGS (24)
  1. BENDAMUSTINE [Suspect]
     Active Substance: BENDAMUSTINE
     Indication: HODGKIN^S DISEASE RECURRENT
     Dosage: UNK
     Route: 065
     Dates: start: 20160101, end: 201701
  2. BLEOMYCIN [Suspect]
     Active Substance: BLEOMYCIN SULFATE
     Indication: HODGKIN^S DISEASE
     Dosage: UNK
     Route: 065
     Dates: start: 20121001, end: 20130801
  3. LAKCID [Concomitant]
     Active Substance: LACTOBACILLUS ACIDOPHILUS
     Indication: PRODUCT USED FOR UNKNOWN INDICATION
     Dosage: 3 DF (3 X 1 CAPS)
     Route: 065
  4. CEFTAZIDIME. [Concomitant]
     Active Substance: CEFTAZIDIME
     Indication: PNEUMONIA
  5. GEMCITABINE [Suspect]
     Active Substance: GEMCITABINE\GEMCITABINE HYDROCHLORIDE
     Indication: HODGKIN^S DISEASE RECURRENT
     Dosage: 4 IGEV COURSES
     Route: 065
  6. GEMCITABINE [Suspect]
     Active Substance: GEMCITABINE\GEMCITABINE HYDROCHLORIDE
     Dosage: 4 COURSES OF IGEV REGIMEN
     Route: 065
  7. VINBLASTINE [Suspect]
     Active Substance: VINBLASTINE
     Indication: HODGKIN^S DISEASE
     Dosage: 4 COURSES ACCORDING TO ABVD
     Route: 065
     Dates: start: 20121001, end: 20130801
  8. VINBLASTINE [Suspect]
     Active Substance: VINBLASTINE
     Indication: HODGKIN^S DISEASE
  9. VINBLASTINE [Suspect]
     Active Substance: VINBLASTINE
     Indication: METASTASES TO LYMPH NODES
  10. GEMCITABINE [Suspect]
     Active Substance: GEMCITABINE\GEMCITABINE HYDROCHLORIDE
     Dosage: UNK
     Route: 065
  11. VINORELBINE [Suspect]
     Active Substance: VINORELBINE\VINORELBINE TARTRATE
     Indication: HODGKIN^S DISEASE RECURRENT
     Dosage: 4 IGEV COURSES
     Route: 065
  12. DACARBAZINE. [Suspect]
     Active Substance: DACARBAZINE
     Indication: HODGKIN^S DISEASE
     Dosage: UNK
     Route: 065
     Dates: start: 20121001, end: 20130801
  13. VINBLASTINE [Suspect]
     Active Substance: VINBLASTINE
     Indication: METASTASES TO LYMPH NODES
  14. BLEOMYCIN [Suspect]
     Active Substance: BLEOMYCIN SULFATE
     Indication: METASTASES TO LYMPH NODES
  15. DOXORUBICIN [Suspect]
     Active Substance: DOXORUBICIN
     Indication: HODGKIN^S DISEASE
     Dosage: 4 COURSES
     Route: 065
     Dates: start: 20121001, end: 20130801
  16. CARBOPLATIN. [Suspect]
     Active Substance: CARBOPLATIN
     Indication: HODGKIN^S DISEASE RECURRENT
     Dosage: 3 COURSES OF ICE REGIMEN
     Route: 065
  17. ETOPOSIDE. [Suspect]
     Active Substance: ETOPOSIDE
     Indication: HODGKIN^S DISEASE RECURRENT
     Dosage: 3 ICE REGIMEN COURSES
     Route: 065
  18. HOLOXAN [Suspect]
     Active Substance: IFOSFAMIDE
     Indication: HODGKIN^S DISEASE
  19. CEFTAZIDIME. [Concomitant]
     Active Substance: CEFTAZIDIME
     Indication: PNEUMONIA
     Dosage: 2 G, BID
     Route: 065
     Dates: start: 20170406
  20. GEMCITABINE [Suspect]
     Active Substance: GEMCITABINE\GEMCITABINE HYDROCHLORIDE
     Dosage: UNK
     Route: 065
  21. HOLOXAN [Suspect]
     Active Substance: IFOSFAMIDE
     Indication: HODGKIN^S DISEASE RECURRENT
     Dosage: 4 COURSES OF IGEV REGIMEN
     Route: 065
     Dates: start: 201512
  22. BRENTUXIMAB [Suspect]
     Active Substance: BRENTUXIMAB VEDOTIN
     Indication: HODGKIN^S DISEASE RECURRENT
     Dosage: UNK
     Route: 065
     Dates: start: 20160101, end: 201701
  23. BRENTUXIMAB [Suspect]
     Active Substance: BRENTUXIMAB VEDOTIN
     Indication: HODGKIN^S DISEASE
  24. AMIKACIN. [Concomitant]
     Active Substance: AMIKACIN
     Indication: PNEUMONIA
     Dosage: 1 G, QD
     Route: 065
     Dates: start: 20170406

REACTIONS (12)
  - Guillain-Barre syndrome [Recovering/Resolving]
  - Quadriplegia [Recovering/Resolving]
  - Urinary retention [Unknown]
  - Hypotonia [Unknown]
  - Off label use [Unknown]
  - Areflexia [Unknown]
  - Product use in unapproved indication [Unknown]
  - Hodgkin^s disease recurrent [Unknown]
  - Demyelinating polyneuropathy [Recovering/Resolving]
  - Peripheral nerve injury [Unknown]
  - Hypoaesthesia [Unknown]
  - Drug ineffective for unapproved indication [Unknown]

NARRATIVE: CASE EVENT DATE: 20170101
